FAERS Safety Report 21633184 (Version 1)
Quarter: 2022Q4

REPORT INFORMATION
  Report Type: Spontaneous
  Country: US (occurrence: None)
  Receive Date: 20221122
  Receipt Date: 20221122
  Transmission Date: 20230113
  Serious: No
  Sender: FDA-Public Use
  Company Number: None

PATIENT
  Sex: Male

DRUGS (10)
  1. CAPECITABINE [Suspect]
     Active Substance: CAPECITABINE
     Indication: Rectal cancer
     Dosage: OTHER QUANTITY : 1500MG/1000MG; ?OTHER FREQUENCY : AM/PM;?ROUTE - 14 DAYS ON, 7 D OFF?
     Route: 048
  2. ASPIRIN [Concomitant]
     Active Substance: ASPIRIN
  3. FERROUS SULFATE [Concomitant]
     Active Substance: FERROUS SULFATE
  4. LISINOPRIL [Concomitant]
     Active Substance: LISINOPRIL
  5. NITROSTAT [Concomitant]
     Active Substance: NITROGLYCERIN
  6. NORVASC [Concomitant]
     Active Substance: AMLODIPINE BESYLATE
  7. PANTOPRAZOLE [Concomitant]
     Active Substance: PANTOPRAZOLE
  8. RIFAXIMIN [Concomitant]
     Active Substance: RIFAXIMIN
  9. SIMVASTATIN [Concomitant]
     Active Substance: SIMVASTATIN
  10. TOPROL XL [Concomitant]
     Active Substance: METOPROLOL SUCCINATE

REACTIONS (1)
  - Hospice care [None]
